FAERS Safety Report 25257310 (Version 3)
Quarter: 2025Q3

REPORT INFORMATION
  Report Type: Spontaneous
  Country: AU (occurrence: AU)
  Receive Date: 20250430
  Receipt Date: 20250902
  Transmission Date: 20251021
  Serious: Yes (Hospitalization, Other)
  Sender: NOVARTIS
  Company Number: AU-002147023-NVSC2025AU068013

PATIENT
  Age: 57 Year
  Sex: Female

DRUGS (3)
  1. FINGOLIMOD [Suspect]
     Active Substance: FINGOLIMOD
     Indication: Relapsing-remitting multiple sclerosis
     Route: 065
  2. FINGOLIMOD [Suspect]
     Active Substance: FINGOLIMOD
     Indication: Multiple sclerosis relapse
  3. FINGOLIMOD [Suspect]
     Active Substance: FINGOLIMOD
     Indication: Multiple sclerosis

REACTIONS (4)
  - Immune reconstitution inflammatory syndrome [Recovering/Resolving]
  - Renal impairment [Recovering/Resolving]
  - Meningitis cryptococcal [Recovering/Resolving]
  - Cryptococcosis [Unknown]
